FAERS Safety Report 21772551 (Version 1)
Quarter: 2022Q4

REPORT INFORMATION
  Report Type: Spontaneous
  Country: HR (occurrence: HR)
  Receive Date: 20221223
  Receipt Date: 20221223
  Transmission Date: 20230112
  Serious: Yes (Hospitalization)
  Sender: FDA-Public Use
  Company Number: HR-BAYER-2022P030006

PATIENT
  Age: 58 Year

DRUGS (1)
  1. SORAFENIB [Suspect]
     Active Substance: SORAFENIB
     Indication: Desmoid tumour
     Dosage: 400 MG DAILY
     Dates: start: 202112

REACTIONS (4)
  - Toxic cardiomyopathy [None]
  - Dyspnoea [None]
  - Fatigue [None]
  - Off label use [None]
